FAERS Safety Report 24074206 (Version 1)
Quarter: 2024Q3

REPORT INFORMATION
  Report Type: Spontaneous
  Country: FR (occurrence: FR)
  Receive Date: 20240710
  Receipt Date: 20240710
  Transmission Date: 20241017
  Serious: Yes (Other)
  Sender: TEVA
  Company Number: None

PATIENT
  Age: 2 Year
  Sex: Male
  Weight: 13.3 kg

DRUGS (20)
  1. PREDNISOLONE [Interacting]
     Active Substance: PREDNISOLONE
     Indication: Viral myocarditis
     Dosage: ACETATE DE PREDNISOLONE
     Route: 048
     Dates: start: 20240424, end: 20240429
  2. PREDNISOLONE [Interacting]
     Active Substance: PREDNISOLONE
     Indication: Viral myocarditis
     Route: 048
     Dates: start: 20240507, end: 20240513
  3. PREDNISOLONE [Interacting]
     Active Substance: PREDNISOLONE
     Indication: Viral myocarditis
     Route: 048
     Dates: start: 20240514, end: 20240514
  4. PREDNISOLONE [Interacting]
     Active Substance: PREDNISOLONE
     Indication: Viral myocarditis
     Route: 048
     Dates: start: 20240521
  5. PREDNISOLONE [Interacting]
     Active Substance: PREDNISOLONE
     Indication: Viral myocarditis
     Route: 048
     Dates: start: 20240430, end: 20240506
  6. PREDNISOLONE [Interacting]
     Active Substance: PREDNISOLONE
     Indication: Viral myocarditis
     Route: 048
     Dates: start: 20240515, end: 20240520
  7. CAPTOPRIL [Concomitant]
     Active Substance: CAPTOPRIL
     Indication: Product used for unknown indication
     Route: 065
  8. BISOPROLOL [Concomitant]
     Active Substance: BISOPROLOL\BISOPROLOL FUMARATE
     Indication: Product used for unknown indication
     Dosage: BISOPROLOL (FUMARATE ACIDE DE)
     Route: 065
  9. FUROSEMIDE [Concomitant]
     Active Substance: FUROSEMIDE
     Indication: Product used for unknown indication
     Route: 065
  10. WARFARIN [Interacting]
     Active Substance: WARFARIN
     Indication: Cardiac ventricular thrombosis
     Route: 048
     Dates: start: 20240504, end: 20240504
  11. WARFARIN [Interacting]
     Active Substance: WARFARIN
     Indication: Cardiac ventricular thrombosis
     Route: 048
     Dates: start: 20240511, end: 20240512
  12. WARFARIN [Interacting]
     Active Substance: WARFARIN
     Indication: Cardiac ventricular thrombosis
     Route: 048
     Dates: start: 20240519, end: 20240524
  13. WARFARIN [Interacting]
     Active Substance: WARFARIN
     Indication: Cardiac ventricular thrombosis
     Route: 048
     Dates: start: 20240502, end: 20240503
  14. WARFARIN [Interacting]
     Active Substance: WARFARIN
     Indication: Cardiac ventricular thrombosis
     Route: 048
     Dates: start: 20240525, end: 20240526
  15. WARFARIN [Interacting]
     Active Substance: WARFARIN
     Indication: Cardiac ventricular thrombosis
     Route: 048
     Dates: start: 20240517, end: 20240518
  16. WARFARIN [Interacting]
     Active Substance: WARFARIN
     Indication: Cardiac ventricular thrombosis
     Route: 048
     Dates: start: 20240508, end: 20240510
  17. WARFARIN [Interacting]
     Active Substance: WARFARIN
     Indication: Cardiac ventricular thrombosis
     Route: 048
     Dates: start: 20240505, end: 20240506
  18. WARFARIN [Interacting]
     Active Substance: WARFARIN
     Indication: Cardiac ventricular thrombosis
     Route: 048
     Dates: start: 20240513, end: 20240513
  19. WARFARIN [Interacting]
     Active Substance: WARFARIN
     Indication: Cardiac ventricular thrombosis
     Route: 048
     Dates: start: 20240515, end: 20240516
  20. BETAFERON [Interacting]
     Active Substance: INTERFERON BETA-1B
     Indication: Viral myocarditis
     Route: 058
     Dates: start: 20240424, end: 20240514

REACTIONS (1)
  - International normalised ratio increased [Recovered/Resolved]

NARRATIVE: CASE EVENT DATE: 20240506
